FAERS Safety Report 6980758-8 (Version None)
Quarter: 2010Q3

REPORT INFORMATION
  Report Type: 
  Country: None (occurrence: None)
  Receive Date: 20100914
  Receipt Date: 20100902
  Transmission Date: 20110219
  Serious: Yes (Other)
  Sender: FDA-Public Use
  Company Number: US-WATSON-2010-12064

PATIENT
  Age: 15 Year
  Sex: Female

DRUGS (1)
  1. METRONIDAZOLE [Suspect]
     Indication: CROHN'S DISEASE
     Dosage: UNK

REACTIONS (3)
  - ATAXIA [None]
  - CENTRAL NERVOUS SYSTEM LESION [None]
  - CEREBELLAR SYNDROME [None]
